FAERS Safety Report 5245695-8 (Version None)
Quarter: 2007Q1

REPORT INFORMATION
  Report Type: 
  Country: None (occurrence: None)
  Receive Date: 20070223
  Receipt Date: 20070213
  Transmission Date: 20070707
  Serious: Yes (Hospitalization)
  Sender: FDA-Public Use
  Company Number: FR-PFIZER INC-2007012410

PATIENT
  Age: 80 Year
  Sex: Male

DRUGS (5)
  1. NEURONTIN [Suspect]
     Route: 048
  2. KARDEGIC [Suspect]
     Route: 048
  3. ZOCOR [Suspect]
     Route: 048
     Dates: start: 20050701, end: 20060307
  4. PLAVIX [Suspect]
     Route: 048
  5. GLUCOPHAGE [Concomitant]

REACTIONS (1)
  - DERMATITIS EXFOLIATIVE [None]
